FAERS Safety Report 10157496 (Version 1)
Quarter: 2014Q2

REPORT INFORMATION
  Report Type: Report from Study
  Country: BR (occurrence: BR)
  Receive Date: 20140507
  Receipt Date: 20140507
  Transmission Date: 20141212
  Serious: Yes (Hospitalization, Other)
  Sender: FDA-Public Use
  Company Number: PHHY2014BR053156

PATIENT
  Sex: Male
  Weight: 63 kg

DRUGS (6)
  1. FORASEQ [Suspect]
     Indication: INFECTION
     Dosage: UNK UKN, BID
     Route: 055
  2. FORASEQ [Suspect]
     Indication: OFF LABEL USE
  3. CAPTOPRIL [Suspect]
     Indication: NERVOUSNESS
     Dosage: 25 MG, BID
     Route: 048
  4. LOSARTAN [Suspect]
     Indication: HYPERTENSION
     Dosage: 25 MG, DAILY (1 IN MORNING AND 1 IN NIGHT )
  5. HYDROCHLOROTHIAZIDE [Concomitant]
     Dosage: UNK UKN, UNK
  6. AAS [Concomitant]
     Dosage: UNK UKN, UNK

REACTIONS (6)
  - Pain [Unknown]
  - Asthenia [Unknown]
  - Cough [Unknown]
  - Blood pressure increased [Unknown]
  - Memory impairment [Unknown]
  - Inflammation [Unknown]
